FAERS Safety Report 17877956 (Version 1)
Quarter: 2020Q2

REPORT INFORMATION
  Report Type: Spontaneous
  Country: US (occurrence: US)
  Receive Date: 20200609
  Receipt Date: 20200609
  Transmission Date: 20200714
  Serious: No
  Sender: FDA-Public Use
  Company Number: US-ALKERMES INC.-ALK-2020-002299

PATIENT
  Sex: Male

DRUGS (2)
  1. ARISTADA [Suspect]
     Active Substance: ARIPIPRAZOLE LAUROXIL
     Indication: SCHIZOPHRENIA
     Dosage: 882 MILLIGRAM
     Route: 030
     Dates: start: 20200528
  2. ARISTADA [Suspect]
     Active Substance: ARIPIPRAZOLE LAUROXIL
     Dosage: 882 MILLIGRAM
     Route: 030

REACTIONS (6)
  - Fatigue [Unknown]
  - Muscle tightness [Not Recovered/Not Resolved]
  - Rash [Not Recovered/Not Resolved]
  - Hypersomnia [Recovered/Resolved]
  - Muscle strain [Not Recovered/Not Resolved]
  - Weight decreased [Not Recovered/Not Resolved]
